FAERS Safety Report 9343997 (Version 8)
Quarter: 2015Q2

REPORT INFORMATION
  Report Type: Spontaneous
  Country: US (occurrence: US)
  Receive Date: 20130612
  Receipt Date: 20150519
  Transmission Date: 20150821
  Serious: Yes (Life-Threatening, Hospitalization, Other)
  Sender: FDA-Public Use
  Company Number: US-PFIZER INC-2013174931

PATIENT
  Age: 8 Year
  Sex: Female
  Weight: 35 kg

DRUGS (3)
  1. ADVIL [Suspect]
     Active Substance: IBUPROFEN
     Indication: PYREXIA
     Dosage: UNK, INTERMITTENTLY
     Route: 048
     Dates: start: 201303
  2. ADVIL [Suspect]
     Active Substance: IBUPROFEN
     Dosage: 200 MG, UNK
     Route: 048
     Dates: start: 20130328
  3. BACTRIM [Concomitant]
     Active Substance: SULFAMETHOXAZOLE\TRIMETHOPRIM
     Indication: URINARY TRACT INFECTION
     Dosage: 400MG-80MG TABLET, 2X/DAY
     Route: 048
     Dates: start: 20130307, end: 20130317

REACTIONS (13)
  - Delirium [Unknown]
  - Cataract [Unknown]
  - Toxic epidermal necrolysis [Recovering/Resolving]
  - Urethritis [Unknown]
  - Acute respiratory failure [Unknown]
  - Punctate keratitis [Unknown]
  - Dry eye [Unknown]
  - Stevens-Johnson syndrome [Unknown]
  - Symblepharon [Unknown]
  - Anxiety [Unknown]
  - Trichiasis [Unknown]
  - Shock [Unknown]
  - Pancreatitis acute [Unknown]

NARRATIVE: CASE EVENT DATE: 20130328
